FAERS Safety Report 6551471-6 (Version None)
Quarter: 2010Q1

REPORT INFORMATION
  Report Type: 
  Country: None (occurrence: None)
  Receive Date: 20100122
  Receipt Date: 20091019
  Transmission Date: 20100710
  Serious: No
  Sender: FDA-Public Use
  Company Number: 2009-00672

PATIENT
  Age: 52 Year
  Sex: Female
  Weight: 58.9676 kg

DRUGS (1)
  1. COLD REMEDY NASAL GEL [Suspect]
     Dosage: SPORADIC - 2 OR 3 DOSES
     Dates: start: 20090301

REACTIONS (2)
  - ANOSMIA [None]
  - NASAL DISCOMFORT [None]
